FAERS Safety Report 19936149 (Version 2)
Quarter: 2021Q4

REPORT INFORMATION
  Report Type: Spontaneous
  Country: GB (occurrence: GB)
  Receive Date: 20211009
  Receipt Date: 20211125
  Transmission Date: 20220304
  Serious: Yes (Other)
  Sender: FDA-Public Use
  Company Number: None

PATIENT
  Age: 62 Year
  Sex: Male

DRUGS (4)
  1. IMATINIB [Suspect]
     Active Substance: IMATINIB
     Indication: Chronic myeloid leukaemia
     Dosage: UNK
     Route: 048
     Dates: start: 20200429, end: 20200910
  2. DASATINIB [Suspect]
     Active Substance: DASATINIB
     Indication: Chronic myeloid leukaemia
     Dosage: UNK
     Route: 065
  3. PONATINIB [Suspect]
     Active Substance: PONATINIB
     Indication: Chronic myeloid leukaemia
     Dosage: UNK
     Route: 065
  4. ALLOPURINOL [Concomitant]
     Active Substance: ALLOPURINOL
     Indication: Prophylaxis
     Route: 048
     Dates: start: 20200429, end: 20200529

REACTIONS (5)
  - Chronic myeloid leukaemia [Unknown]
  - Malignant neoplasm progression [Unknown]
  - Cytogenetic analysis abnormal [Unknown]
  - Drug intolerance [Recovered/Resolved]
  - White blood cell count decreased [Unknown]

NARRATIVE: CASE EVENT DATE: 20200910
